FAERS Safety Report 5038758-3 (Version None)
Quarter: 2006Q2

REPORT INFORMATION
  Report Type: 
  Country: None (occurrence: None)
  Receive Date: 20060627
  Receipt Date: 20060627
  Transmission Date: 20061013
  Serious: Yes (Hospitalization)
  Sender: FDA-Public Use
  Company Number: None

PATIENT
  Sex: Female
  Weight: 69.4003 kg

DRUGS (2)
  1. ESTRADIOL [Suspect]
     Indication: ATROPHIC VULVOVAGINITIS
     Dosage: TITRATED FROM 4 GM DAILY TO 1 DAILY TO 3 X WEEK VAG
     Route: 067
     Dates: start: 20060324, end: 20060619
  2. ESTRACE [Suspect]
     Indication: ATROPHIC VULVOVAGINITIS
     Dosage: TITRATED FROM 4GM DAILY TO 1 G DAILY TO 3 X WEEK VAG
     Route: 067
     Dates: start: 20060324, end: 20060619

REACTIONS (2)
  - ANIMAL BITE [None]
  - CELLULITIS [None]
